FAERS Safety Report 24444098 (Version 2)
Quarter: 2024Q4

REPORT INFORMATION
  Report Type: Report from Study
  Country: CA (occurrence: CA)
  Receive Date: 20241016
  Receipt Date: 20241017
  Transmission Date: 20250114
  Serious: No
  Sender: ROCHE
  Company Number: CA-ROCHE-2646624

PATIENT
  Age: 35 Year
  Sex: Female

DRUGS (14)
  1. RITUXAN [Suspect]
     Active Substance: RITUXIMAB
     Indication: Retinitis pigmentosa
     Route: 042
     Dates: start: 20200720, end: 20200720
  2. RITUXAN [Suspect]
     Active Substance: RITUXIMAB
     Indication: Autoimmune retinopathy
     Dosage: ONGOING
     Route: 042
     Dates: start: 20200804
  3. RITUXAN [Suspect]
     Active Substance: RITUXIMAB
     Indication: Peripheral venous disease
     Route: 042
  4. RITUXAN [Suspect]
     Active Substance: RITUXIMAB
     Indication: Fibromyalgia
     Route: 042
  5. RITUXAN [Suspect]
     Active Substance: RITUXIMAB
     Route: 042
  6. RITUXAN [Suspect]
     Active Substance: RITUXIMAB
     Route: 042
  7. BENADRYL [Concomitant]
     Active Substance: DIPHENHYDRAMINE HYDROCHLORIDE
     Indication: Premedication
     Route: 048
     Dates: start: 20200720, end: 20200720
  8. BENADRYL [Concomitant]
     Active Substance: DIPHENHYDRAMINE HYDROCHLORIDE
     Dosage: ONGOING
     Route: 042
     Dates: start: 20200804
  9. CYCLOSPORINE [Concomitant]
     Active Substance: CYCLOSPORINE
     Dates: start: 20200501
  10. SOLU-MEDROL [Concomitant]
     Active Substance: METHYLPREDNISOLONE SODIUM SUCCINATE
     Indication: Premedication
     Route: 042
     Dates: start: 20200720
  11. TYLENOL [Concomitant]
     Active Substance: ACETAMINOPHEN
     Indication: Premedication
     Route: 048
     Dates: start: 20200720
  12. TYLENOL WITH CODEINE [Concomitant]
     Active Substance: ACETAMINOPHEN\CODEINE PHOSPHATE
     Indication: Migraine
  13. CELLCEPT [Concomitant]
     Active Substance: MYCOPHENOLATE MOFETIL
     Indication: Retinitis pigmentosa
     Route: 048
     Dates: start: 20200501
  14. CELLCEPT [Concomitant]
     Active Substance: MYCOPHENOLATE MOFETIL
     Indication: Birdshot chorioretinopathy

REACTIONS (10)
  - Off label use [Unknown]
  - Pruritus [Unknown]
  - Erythema [Unknown]
  - Oxygen saturation decreased [Unknown]
  - Urticaria [Unknown]
  - Heart rate decreased [Unknown]
  - Ovarian enlargement [Not Recovered/Not Resolved]
  - Infusion related reaction [Unknown]
  - Blood pressure diastolic abnormal [Unknown]
  - Heart rate increased [Unknown]

NARRATIVE: CASE EVENT DATE: 20200720
